FAERS Safety Report 8015722-3 (Version None)
Quarter: 2011Q4

REPORT INFORMATION
  Report Type: 
  Country: None (occurrence: None)
  Receive Date: 20111230
  Receipt Date: 20111223
  Transmission Date: 20120403
  Serious: Yes (Life-Threatening, Other)
  Sender: FDA-Public Use
  Company Number: PHEH2011US012450

PATIENT
  Sex: Female

DRUGS (2)
  1. DIOVAN [Suspect]
     Dosage: 160 MG, ONCE DAILY
  2. LISINOPRIL [Suspect]
     Dosage: 10 MG, UNK

REACTIONS (11)
  - FEELING ABNORMAL [None]
  - COUGH [None]
  - ASTHENIA [None]
  - INSOMNIA [None]
  - POOR VENOUS ACCESS [None]
  - BLOOD PRESSURE INCREASED [None]
  - PYREXIA [None]
  - COGNITIVE DISORDER [None]
  - ANXIETY [None]
  - LOGORRHOEA [None]
  - URINE COLOUR ABNORMAL [None]
